FAERS Safety Report 18022947 (Version 2)
Quarter: 2020Q4

REPORT INFORMATION
  Report Type: Spontaneous
  Country: US (occurrence: US)
  Receive Date: 20200715
  Receipt Date: 20201014
  Transmission Date: 20210113
  Serious: No
  Sender: FDA-Public Use
  Company Number: US-ALLERGAN-2019092US

PATIENT
  Age: 57 Year
  Sex: Female

DRUGS (6)
  1. UBRELVY [Suspect]
     Active Substance: UBROGEPANT
     Indication: MIGRAINE
     Dosage: 50 TO 100 MG PER EPISODE
  2. TRIPTANS [Concomitant]
     Active Substance: UNSPECIFIED INGREDIENT
  3. EMGALITY [Suspect]
     Active Substance: GALCANEZUMAB-GNLM
     Indication: MIGRAINE
     Dosage: UNK, Q MONTH
     Dates: start: 2019
  4. UBRELVY [Suspect]
     Active Substance: UBROGEPANT
     Dosage: 50 MG
     Dates: start: 202002
  5. CALCITONIN GENE RELATED PEPTIDE [Suspect]
     Active Substance: CALCITONIN GENE-RELATED PEPTIDE
     Indication: PRODUCT USED FOR UNKNOWN INDICATION
  6. NURTEC ODT [Concomitant]
     Active Substance: RIMEGEPANT SULFATE
     Indication: MIGRAINE

REACTIONS (2)
  - Insomnia [Unknown]
  - Therapeutic response decreased [Unknown]
